FAERS Safety Report 10597564 (Version 1)
Quarter: 2014Q4

REPORT INFORMATION
  Report Type: Spontaneous
  Country: US (occurrence: None)
  Receive Date: 20141119
  Receipt Date: 20141119
  Transmission Date: 20150529
  Serious: Yes (Other)
  Sender: FDA-Public Use
  Company Number: 2014SA116619

PATIENT
  Age: 37 Year
  Sex: Female

DRUGS (11)
  1. KAOLIN / PAPAVER SOMNIFERUM LATEX [Concomitant]
  2. LOVASTATIN. [Concomitant]
     Active Substance: LOVASTATIN
  3. TOPIRAMATE. [Concomitant]
     Active Substance: TOPIRAMATE
  4. HMG COA REDUCTASE INHIBITORS [Concomitant]
     Active Substance: UNSPECIFIED INGREDIENT
  5. KYNAMRO [Suspect]
     Active Substance: MIPOMERSEN SODIUM
     Indication: TYPE IIA HYPERLIPIDAEMIA
     Route: 058
     Dates: start: 20140801
  6. VITAMIN D [Concomitant]
     Active Substance: CHOLECALCIFEROL
  7. WELCHOL [Concomitant]
     Active Substance: COLESEVELAM HYDROCHLORIDE
  8. COENZYME Q10 [Concomitant]
     Active Substance: UBIDECARENONE
  9. CRESTOR [Concomitant]
     Active Substance: ROSUVASTATIN CALCIUM
  10. RIZATRIPTAN [Concomitant]
     Active Substance: RIZATRIPTAN
  11. CETIRIZINE [Concomitant]
     Active Substance: CETIRIZINE HYDROCHLORIDE

REACTIONS (10)
  - Injection site discolouration [None]
  - Alanine aminotransferase increased [None]
  - Injection site cellulitis [None]
  - Injection site erythema [None]
  - Nausea [None]
  - Injection site warmth [None]
  - Fatigue [None]
  - Injection site pain [None]
  - Aspartate aminotransferase increased [None]
  - Injection site swelling [None]

NARRATIVE: CASE EVENT DATE: 20141103
